FAERS Safety Report 6271715-8 (Version None)
Quarter: 2009Q3

REPORT INFORMATION
  Report Type: 
  Country: None (occurrence: None)
  Receive Date: 20090713
  Receipt Date: 20090407
  Transmission Date: 20100115
  Serious: Yes (Other)
  Sender: FDA-Public Use
  Company Number: 58802

PATIENT
  Age: 55 Year
  Sex: Male

DRUGS (1)
  1. MIDAZOLAM HCL [Suspect]
     Indication: POSTOPERATIVE CARE

REACTIONS (3)
  - AGITATION [None]
  - HALLUCINATION [None]
  - INSOMNIA [None]
